FAERS Safety Report 19241318 (Version 1)
Quarter: 2021Q2

REPORT INFORMATION
  Report Type: Spontaneous
  Country: US (occurrence: US)
  Receive Date: 20210511
  Receipt Date: 20210511
  Transmission Date: 20210717
  Serious: No
  Sender: FDA-Public Use
  Company Number: US-BAYER-2021-137896

PATIENT
  Age: 50 Year
  Sex: Female

DRUGS (3)
  1. METHOTREXATE. [Concomitant]
     Active Substance: METHOTREXATE
  2. MIRENA [Suspect]
     Active Substance: LEVONORGESTREL
     Indication: PREMENSTRUAL SYNDROME
     Dosage: 20 ?G PER DAY CONTINOUSLY
     Route: 015
     Dates: start: 2019
  3. ENBREL [Concomitant]
     Active Substance: ETANERCEPT

REACTIONS (4)
  - Joint swelling [None]
  - Off label use [None]
  - Arthralgia [None]
  - Product use in unapproved indication [None]

NARRATIVE: CASE EVENT DATE: 2019
